FAERS Safety Report 5762934-5 (Version None)
Quarter: 2008Q2

REPORT INFORMATION
  Report Type: 
  Country: None (occurrence: None)
  Receive Date: 20080609
  Receipt Date: 20080603
  Transmission Date: 20081010
  Serious: Yes (Other)
  Sender: FDA-Public Use
  Company Number: CA-ASTRAZENECA-2006UW15884

PATIENT
  Age: 76 Year
  Sex: Male

DRUGS (6)
  1. CASODEX [Suspect]
     Route: 048
     Dates: start: 20060501
  2. CASODEX [Suspect]
     Route: 048
     Dates: start: 20080526
  3. ZOLADEX [Suspect]
     Route: 058
     Dates: start: 20061108
  4. FOSAMAX [Concomitant]
  5. COSOPT [Concomitant]
     Indication: GLAUCOMA
     Dates: end: 20060801
  6. XALATAN [Concomitant]
     Indication: GLAUCOMA

REACTIONS (11)
  - BLOOD CREATININE DECREASED [None]
  - CONSTIPATION [None]
  - FATIGUE [None]
  - FEELING ABNORMAL [None]
  - INTESTINAL OBSTRUCTION [None]
  - LETHARGY [None]
  - PARAESTHESIA [None]
  - PERIPHERAL COLDNESS [None]
  - SENSATION OF PRESSURE [None]
  - SOMNOLENCE [None]
  - URINARY TRACT DISORDER [None]
